FAERS Safety Report 18654895 (Version 2)
Quarter: 2021Q1

REPORT INFORMATION
  Report Type: Spontaneous
  Country: JP (occurrence: JP)
  Receive Date: 20201223
  Receipt Date: 20210120
  Transmission Date: 20210419
  Serious: Yes (Other)
  Sender: FDA-Public Use
  Company Number: JP-PFIZER INC-2020500827

PATIENT
  Age: 66 Year
  Sex: Male
  Weight: 58 kg

DRUGS (5)
  1. CHAMPIX 1MG [Suspect]
     Active Substance: VARENICLINE TARTRATE
     Dosage: 1 MG, 2X/DAY
     Route: 048
     Dates: start: 20200924, end: 20201114
  2. MAGMITT [Concomitant]
     Active Substance: MAGNESIUM OXIDE
     Dosage: 330 MG, 3X/DAY
     Route: 048
     Dates: start: 20200703
  3. AZILVA [Concomitant]
     Active Substance: AZILSARTAN KAMEDOXOMIL
     Dosage: 40 MG, 1X/DAY
     Route: 048
     Dates: start: 20180703
  4. NIFEDIPINE. [Concomitant]
     Active Substance: NIFEDIPINE
     Dosage: 10 MG, 2X/DAY
     Route: 048
     Dates: start: 20190111
  5. SENNOSIDE [SENNOSIDE A+B CALCIUM] [Concomitant]
     Active Substance: SENNOSIDES A AND B
     Dosage: 12 MG, 2X/DAY
     Route: 048
     Dates: start: 20200918

REACTIONS (3)
  - Blood triglycerides increased [Not Recovered/Not Resolved]
  - Feeling abnormal [Recovering/Resolving]
  - Blood bilirubin decreased [Not Recovered/Not Resolved]

NARRATIVE: CASE EVENT DATE: 20200924
